FAERS Safety Report 6075206-9 (Version None)
Quarter: 2009Q1

REPORT INFORMATION
  Report Type: 
  Country: None (occurrence: None)
  Receive Date: 20090121
  Receipt Date: 20080505
  Transmission Date: 20090719
  Serious: Yes (Other)
  Sender: FDA-Public Use
  Company Number: HQWYE502524AUG04

PATIENT
  Age: 72 Year
  Sex: Female

DRUGS (1)
  1. PREMPRO [Suspect]
     Indication: MENOPAUSE
     Dosage: 0.625 MG 1 X PER 1 DAY, ORAL
     Route: 048
     Dates: start: 19970811, end: 20020501

REACTIONS (1)
  - BREAST CANCER [None]
